FAERS Safety Report 9696728 (Version 1)
Quarter: 2013Q4

REPORT INFORMATION
  Report Type: Spontaneous
  Country: US (occurrence: US)
  Receive Date: 20131119
  Receipt Date: 20131119
  Transmission Date: 20140711
  Serious: No
  Sender: FDA-Public Use
  Company Number: US-GILEAD-2007-0014467

PATIENT
  Age: 49 Year
  Sex: Male
  Weight: 102.6 kg

DRUGS (13)
  1. LETAIRIS [Suspect]
     Indication: PULMONARY ARTERIAL HYPERTENSION
     Route: 048
     Dates: start: 20071015
  2. SYNTHROID [Concomitant]
  3. METOPROLOL [Concomitant]
  4. AMIODARONE [Concomitant]
  5. MILTAZEPINE [Concomitant]
  6. VIAGRA [Concomitant]
  7. COUMADIN [Concomitant]
  8. LANOXIN [Concomitant]
  9. XANAX [Concomitant]
  10. SPIRONOLACTONE [Concomitant]
  11. MULTIVITAMINS [Concomitant]
  12. BENADRYL [Concomitant]
     Dates: start: 20071126
  13. MUCINEX [Concomitant]
     Dates: start: 20071126

REACTIONS (3)
  - Weight increased [Recovered/Resolved]
  - Oedema peripheral [Unknown]
  - Dyspnoea [Unknown]
